FAERS Safety Report 6014590-9 (Version None)
Quarter: 2008Q4

REPORT INFORMATION
  Report Type: 
  Country: None (occurrence: None)
  Receive Date: 20081219
  Receipt Date: 20080905
  Transmission Date: 20090506
  Serious: No
  Sender: FDA-Public Use
  Company Number: A0746126A

PATIENT
  Age: 73 Year
  Sex: Male

DRUGS (6)
  1. AVODART [Suspect]
     Indication: BENIGN PROSTATIC HYPERPLASIA
     Dosage: .5MG PER DAY
     Route: 048
     Dates: start: 20070701
  2. HYDROCHLOROTHIAZIDE [Concomitant]
  3. ONE A DAY VITAMINS [Concomitant]
  4. ASCORBIC ACID [Concomitant]
  5. ASPIRIN [Concomitant]
  6. CALTRATE [Concomitant]

REACTIONS (4)
  - ADVERSE DRUG REACTION [None]
  - PRURITUS [None]
  - RASH [None]
  - RASH MACULAR [None]
